FAERS Safety Report 11690099 (Version 1)
Quarter: 2015Q4

REPORT INFORMATION
  Report Type: Spontaneous
  Country: US (occurrence: US)
  Receive Date: 20151102
  Receipt Date: 20151102
  Transmission Date: 20160304
  Serious: No
  Sender: FDA-Public Use
  Company Number: US-WATSON-2015-13018

PATIENT
  Age: 72 Year
  Sex: Male

DRUGS (3)
  1. RAPAFLO [Suspect]
     Active Substance: SILODOSIN
     Indication: BENIGN PROSTATIC HYPERPLASIA
     Dosage: 4 MG, DAILY
     Route: 048
     Dates: start: 20150414, end: 20150417
  2. ATENOLOL. [Concomitant]
     Active Substance: ATENOLOL
  3. RAPAFLO [Suspect]
     Active Substance: SILODOSIN
     Dosage: 4 MG, DAILY
     Route: 048
     Dates: start: 20150618, end: 20150620

REACTIONS (2)
  - Arrhythmia [Unknown]
  - Palpitations [Recovered/Resolved]

NARRATIVE: CASE EVENT DATE: 201504
